FAERS Safety Report 26149570 (Version 1)
Quarter: 2025Q4

REPORT INFORMATION
  Report Type: Spontaneous
  Country: MA (occurrence: MA)
  Receive Date: 20251212
  Receipt Date: 20251212
  Transmission Date: 20260118
  Serious: Yes (Other)
  Sender: ROCHE
  Company Number: MA-ROCHE-10000451624

PATIENT

DRUGS (2)
  1. FARICIMAB [Suspect]
     Active Substance: FARICIMAB
     Indication: Diabetic retinopathy
  2. FARICIMAB [Suspect]
     Active Substance: FARICIMAB
     Indication: Diabetic retinal oedema

REACTIONS (2)
  - Retinal aneurysm [Unknown]
  - Diabetic retinal oedema [Unknown]
